FAERS Safety Report 4502509-9 (Version None)
Quarter: 2004Q4

REPORT INFORMATION
  Report Type: 
  Country: None (occurrence: None)
  Receive Date: 20041112
  Receipt Date: 20041103
  Transmission Date: 20050328
  Serious: Yes (Other)
  Sender: FDA-Public Use
  Company Number: HQWYE107327OCT04

PATIENT
  Age: 55 Year
  Sex: Male

DRUGS (1)
  1. CORDARONE [Suspect]
     Indication: ATRIAL FIBRILLATION
     Dosage: 200 MG 1X PER 1 DAY ORAL
     Route: 048
     Dates: start: 20020101, end: 20040101

REACTIONS (4)
  - ACTINIC KERATOSIS [None]
  - ERYTHEMA [None]
  - NIGHTMARE [None]
  - PHOTOSENSITIVITY REACTION [None]
